FAERS Safety Report 18768238 (Version 1)
Quarter: 2021Q1

REPORT INFORMATION
  Report Type: Report from Study
  Country: US (occurrence: US)
  Receive Date: 20210121
  Receipt Date: 20210121
  Transmission Date: 20210419
  Serious: Yes (Hospitalization)
  Sender: FDA-Public Use
  Company Number: US-JNJFOC-20210116027

PATIENT
  Age: 34 Year
  Sex: Female

DRUGS (1)
  1. OPSUMIT [Suspect]
     Active Substance: MACITENTAN
     Indication: PULMONARY HYPERTENSION
     Route: 048
     Dates: start: 20200824

REACTIONS (4)
  - Oedema [Unknown]
  - Cardiac disorder [Unknown]
  - Respiration abnormal [Unknown]
  - Discomfort [Unknown]

NARRATIVE: CASE EVENT DATE: 20210107
